FAERS Safety Report 7169809-8 (Version None)
Quarter: 2010Q4

REPORT INFORMATION
  Report Type: 
  Country: None (occurrence: None)
  Receive Date: 20101206
  Receipt Date: 20101119
  Transmission Date: 20110411
  Serious: Yes (Congenital Anomaly)
  Sender: FDA-Public Use
  Company Number: AUR-APL-2010-02914

PATIENT
  Age: 40 Week
  Sex: Male
  Weight: 3.56 kg

DRUGS (3)
  1. LAMOTRIGINE [Suspect]
     Dosage: 30MG-QD-TRANSPLACENTAL
     Route: 064
  2. TOPIRAMATE [Suspect]
     Dosage: 250MG-QD-TRANSPLACENTAL
     Route: 064
  3. PHENOBARBITONE [Suspect]
     Dosage: 60 MG - QD - TRANSPLACENTAL
     Route: 064

REACTIONS (2)
  - CLEFT LIP AND PALATE [None]
  - MATERNAL DRUGS AFFECTING FOETUS [None]
